FAERS Safety Report 5325971-0 (Version None)
Quarter: 2007Q2

REPORT INFORMATION
  Report Type: 
  Country: None (occurrence: None)
  Receive Date: 20070516
  Receipt Date: 20070420
  Transmission Date: 20071010
  Serious: No
  Sender: FDA-Public Use
  Company Number: A0645885A

PATIENT
  Sex: Female
  Weight: 105.5 kg

DRUGS (1)
  1. COREG CR [Suspect]
     Indication: CARDIAC FAILURE
     Route: 065
     Dates: start: 20070301, end: 20070401

REACTIONS (4)
  - ABDOMINAL DISCOMFORT [None]
  - ABDOMINAL PAIN [None]
  - ABDOMINAL PAIN UPPER [None]
  - DYSPEPSIA [None]
